FAERS Safety Report 8101994-3 (Version None)
Quarter: 2012Q1

REPORT INFORMATION
  Report Type: 
  Country: None (occurrence: None)
  Receive Date: 20120131
  Receipt Date: 20120126
  Transmission Date: 20120608
  Serious: Yes (Other)
  Sender: FDA-Public Use
  Company Number: PT-ROXANE LABORATORIES, INC.-2012-RO-00555RO

PATIENT
  Age: 78 Year
  Sex: Female

DRUGS (3)
  1. METHOTREXATE [Suspect]
     Indication: BREAST CANCER STAGE II
  2. CYCLOPHOSPHAMIDE [Suspect]
     Indication: BREAST CANCER STAGE II
  3. FLUOROURACIL [Suspect]
     Indication: BREAST CANCER STAGE II

REACTIONS (1)
  - TOXIC SKIN ERUPTION [None]
